FAERS Safety Report 5941675-5 (Version None)
Quarter: 2008Q4

REPORT INFORMATION
  Report Type: 
  Country: None (occurrence: None)
  Receive Date: 20081105
  Receipt Date: 20081027
  Transmission Date: 20090506
  Serious: Yes (Hospitalization, Other)
  Sender: FDA-Public Use
  Company Number: GB-JNJFOC-20081006953

PATIENT
  Sex: Female
  Weight: 54 kg

DRUGS (7)
  1. REMICADE [Suspect]
     Indication: RHEUMATOID ARTHRITIS
     Route: 042
  2. METHOTREXATE [Concomitant]
  3. DICLOFENAC [Concomitant]
  4. FELODIPINE [Concomitant]
  5. FOLIC ACID [Concomitant]
  6. LANSOPRAZOLE [Concomitant]
  7. ACETAMINOPHEN [Concomitant]

REACTIONS (3)
  - ACCIDENT [None]
  - EPISTAXIS [None]
  - TOOTH SOCKET HAEMORRHAGE [None]
